FAERS Safety Report 8407532-X (Version None)
Quarter: 2012Q2

REPORT INFORMATION
  Report Type: 
  Country: None (occurrence: None)
  Receive Date: 20120604
  Receipt Date: 20120525
  Transmission Date: 20120825
  Serious: Yes (Hospitalization)
  Sender: FDA-Public Use
  Company Number: US-ASTRAZENECA-2012SE18166

PATIENT
  Age: 60 Year
  Sex: Female

DRUGS (2)
  1. NEXIUM [Suspect]
     Route: 048
  2. NEXIUM [Suspect]
     Dosage: GENERIC
     Route: 048

REACTIONS (6)
  - DEHYDRATION [None]
  - APHAGIA [None]
  - IMPAIRED GASTRIC EMPTYING [None]
  - DRUG DOSE OMISSION [None]
  - DRUG INEFFECTIVE [None]
  - VOMITING [None]
